FAERS Safety Report 9920871 (Version 1)
Quarter: 2014Q1

REPORT INFORMATION
  Report Type: Report from Study
  Country: US (occurrence: US)
  Receive Date: 20140225
  Receipt Date: 20140225
  Transmission Date: 20141002
  Serious: Yes (Death)
  Sender: FDA-Public Use
  Company Number: US-ROCHE-1318696

PATIENT
  Sex: Male
  Weight: 66.74 kg

DRUGS (22)
  1. AVASTIN [Suspect]
     Indication: COLON CANCER METASTATIC
     Route: 042
     Dates: start: 20110607
  2. AVASTIN [Suspect]
     Route: 042
     Dates: start: 20111115
  3. AVASTIN [Suspect]
     Route: 042
     Dates: start: 20120611
  4. CAPECITABINE [Suspect]
     Indication: COLON CANCER
     Dosage: DAYS 1-14
     Route: 048
  5. 5-FU [Concomitant]
     Route: 041
  6. 5-FU [Concomitant]
     Route: 040
  7. OXALIPLATIN [Concomitant]
     Route: 040
     Dates: start: 20110607
  8. OXALIPLATIN [Concomitant]
     Route: 040
     Dates: start: 20111115
  9. LEUCOVORIN CALCIUM [Concomitant]
     Route: 040
     Dates: start: 20110607
  10. LEUCOVORIN CALCIUM [Concomitant]
     Route: 040
  11. AMOXICILLIN [Concomitant]
     Route: 048
  12. NOVOLIN 70/30 [Concomitant]
     Route: 058
  13. NYSTATIN [Concomitant]
     Dosage: SWISH AND SWALLOW
     Route: 048
  14. TRIPLE MIX MOUTHWASH (NYSTATIN/BENADRYL/LIDOCAINE VISCOUS) [Concomitant]
     Dosage: ONE TEASPOON, SWISH AND SWALLOW QID
     Route: 065
  15. HEPARIN SODIUM [Concomitant]
     Route: 042
     Dates: start: 20111115
  16. DEXAMETHASONE SODIUM PHOSPHATE [Concomitant]
     Route: 040
     Dates: start: 20111115
  17. GRANISETRON [Concomitant]
     Dosage: 1000 MCG
     Route: 040
     Dates: start: 20111115
  18. PALONOSETRON [Concomitant]
     Route: 042
  19. CALCIUM GLUCONATE [Concomitant]
     Indication: NEUROTOXICITY
     Route: 042
  20. MAGNESIUM SULFATE [Concomitant]
     Indication: NEUROTOXICITY
     Route: 042
  21. HYDROCORTISONE SODIUM SUCCINATE [Concomitant]
     Route: 065
  22. METHYLPREDNISOLONE SODIUM SUCCINATE [Concomitant]
     Route: 065

REACTIONS (8)
  - Death [Fatal]
  - Hypertension [Unknown]
  - Diabetes mellitus [Unknown]
  - Leukopenia [Unknown]
  - Anaemia [Unknown]
  - Constipation [Unknown]
  - Gingivitis [Unknown]
  - Pain [Unknown]
